FAERS Safety Report 10238950 (Version 1)
Quarter: 2014Q1

REPORT INFORMATION
  Report Type: Spontaneous
  Country: US (occurrence: None)
  Receive Date: 20140306
  Receipt Date: 20140306
  Transmission Date: 20141002
  Serious: Yes (Hospitalization, Other)
  Sender: FDA-Public Use
  Company Number: 163-21880-13040358

PATIENT
  Age: 82 Year
  Sex: Female

DRUGS (13)
  1. REVLIMIDE(LENALIDOMIDE)(10 MILLIGRAM, CAPSULES) [Suspect]
     Indication: PLASMA CELL MYELOMA
     Dates: start: 20110519
  2. DECADRON(DEXAMETHASONE)(UKNOWN) [Concomitant]
  3. METOPROLOL (METOPROLOL)(UKNOWN) [Concomitant]
  4. HCTZ(HYDROCHLOROTHIAZIDE)(UKNOWN) [Concomitant]
  5. PREDNISONE(PREDNISONE)(UKNOWN) [Concomitant]
  6. ASA (ACETYLSALICYLIC ACID)(UKNOWN) [Concomitant]
  7. COUMADIN(WARFARIN SODIUM)(UKNOWN) [Concomitant]
  8. BENADRYL(DIPHENHYDRAMINE HYDROCHLORIDE)(UKNOWN) [Concomitant]
  9. PRAVASTATIN(PRAVASTATIN)(UKNOWN) [Concomitant]
  10. DIAZEPAM(DIAZEPAM)(UKNOWN) [Concomitant]
  11. NABUMETONE(NABUMETONE)(UKNOWN) [Concomitant]
  12. OSCAL(CALCIUM CARBONATE)(KNOWN) [Concomitant]
  13. VIT D (ERGOCALCIFEROL)(UKNOWN) [Concomitant]

REACTIONS (3)
  - Pancytopenia [None]
  - Pulmonary embolism [None]
  - Deep vein thrombosis [None]
